FAERS Safety Report 4993289-1 (Version None)
Quarter: 2006Q2

REPORT INFORMATION
  Report Type: 
  Country: None (occurrence: None)
  Receive Date: 20060505
  Receipt Date: 20060426
  Transmission Date: 20061013
  Serious: Yes (Death, Hospitalization, Other)
  Sender: FDA-Public Use
  Company Number: DE-JNJFOC-20060200369

PATIENT
  Age: 55 Year
  Sex: Male

DRUGS (21)
  1. REMICADE [Suspect]
     Route: 042
  2. REMICADE [Suspect]
     Indication: CROHN'S DISEASE
     Dosage: 16 INFUSIONS
     Route: 042
  3. SINUPRET FORTE [Concomitant]
  4. SINUPRET FORTE [Concomitant]
  5. SINUPRET FORTE [Concomitant]
  6. SINUPRET FORTE [Concomitant]
  7. SINUPRET FORTE [Concomitant]
  8. SINUPRET FORTE [Concomitant]
  9. DIAZEPAM [Concomitant]
  10. BELOC-ZOK [Concomitant]
  11. BELOC-ZOK [Concomitant]
  12. ASPIRIN [Concomitant]
  13. PLAVIX [Concomitant]
  14. DELIX [Concomitant]
  15. PANTOZOL [Concomitant]
  16. SORTIS [Concomitant]
  17. DECORTIN [Concomitant]
  18. SALOFALK [Concomitant]
  19. MST [Concomitant]
  20. THIAMAZOL [Concomitant]
  21. NOVALGIN [Concomitant]

REACTIONS (5)
  - DEATH [None]
  - GOITRE [None]
  - METASTASES TO CENTRAL NERVOUS SYSTEM [None]
  - MYOCARDIAL INFARCTION [None]
  - NASAL CAVITY CANCER [None]
